FAERS Safety Report 15883050 (Version 6)
Quarter: 2020Q1

REPORT INFORMATION
  Report Type: Report from Study
  Country: US (occurrence: US)
  Receive Date: 20190129
  Receipt Date: 20200117
  Transmission Date: 20200409
  Serious: Yes (Disabling)
  Sender: FDA-Public Use
  Company Number: US-AMGEN-USASP2019010942

PATIENT
  Age: 67 Year
  Sex: Female

DRUGS (2)
  1. REPATHA [Suspect]
     Active Substance: EVOLOCUMAB
     Dosage: UNK
     Route: 065
  2. REPATHA [Suspect]
     Active Substance: EVOLOCUMAB
     Indication: BLOOD CHOLESTEROL INCREASED
     Dosage: 140 MILLIGRAM, Q2WK
     Route: 065
     Dates: start: 20190107, end: 20190204

REACTIONS (25)
  - Back pain [Recovered/Resolved]
  - Tendon disorder [Not Recovered/Not Resolved]
  - Vision blurred [Unknown]
  - Hypoacusis [Unknown]
  - Hypoaesthesia [Unknown]
  - Insomnia [Unknown]
  - Musculoskeletal pain [Unknown]
  - Wrong technique in device usage process [Unknown]
  - Periorbital swelling [Recovered/Resolved]
  - Paraesthesia [Unknown]
  - Gait disturbance [Unknown]
  - Halo vision [Unknown]
  - Eyelid oedema [Unknown]
  - Drug intolerance [Unknown]
  - Ear congestion [Not Recovered/Not Resolved]
  - Pain in extremity [Recovering/Resolving]
  - Tremor [Unknown]
  - Muscle atrophy [Unknown]
  - Muscle injury [Unknown]
  - Weight bearing difficulty [Unknown]
  - Muscle disorder [Unknown]
  - Inner ear inflammation [Unknown]
  - Tinnitus [Unknown]
  - Fatigue [Unknown]
  - Myalgia [Not Recovered/Not Resolved]

NARRATIVE: CASE EVENT DATE: 2019
